FAERS Safety Report 11571980 (Version 2)
Quarter: 2016Q4

REPORT INFORMATION
  Report Type: Spontaneous
  Country: US (occurrence: US)
  Receive Date: 20150929
  Receipt Date: 20161007
  Transmission Date: 20170206
  Serious: Yes (Other)
  Sender: FDA-Public Use
  Company Number: US-SA-2015SA128908

PATIENT
  Age: 60 Year
  Sex: Female

DRUGS (2)
  1. AUBAGIO [Suspect]
     Active Substance: TERIFLUNOMIDE
     Indication: MULTIPLE SCLEROSIS
     Route: 048
  2. TEGRETOL [Concomitant]
     Active Substance: CARBAMAZEPINE

REACTIONS (3)
  - Multiple sclerosis relapse [Not Recovered/Not Resolved]
  - Pain in jaw [Unknown]
  - Oral pain [Unknown]
